FAERS Safety Report 19318660 (Version 1)
Quarter: 2021Q2

REPORT INFORMATION
  Report Type: Other
  Country: IN (occurrence: IN)
  Receive Date: 20210527
  Receipt Date: 20210527
  Transmission Date: 20210717
  Serious: Yes (Death, Life-Threatening, Hospitalization, Other)
  Sender: FDA-Public Use
  Company Number: IN-APPCO PHARMA LLC-2112047

PATIENT
  Age: 65 Year
  Sex: Male

DRUGS (6)
  1. CEFTRIAXONE. [Suspect]
     Active Substance: CEFTRIAXONE
     Route: 042
  2. OSELTAMIVIR PHOSPHATE. [Suspect]
     Active Substance: OSELTAMIVIR PHOSPHATE
     Route: 048
  3. AZITHROMYCIN ANHYDROUS. [Suspect]
     Active Substance: AZITHROMYCIN ANHYDROUS
     Route: 065
  4. VITAMIN C [Suspect]
     Active Substance: ASCORBIC ACID
     Route: 065
  5. HYDROXYCHLOROQUINE SULFATE. [Suspect]
     Active Substance: HYDROXYCHLOROQUINE SULFATE
     Indication: COVID-19
     Route: 065
  6. ZINC. [Suspect]
     Active Substance: ZINC
     Route: 065

REACTIONS (4)
  - Acute respiratory distress syndrome [Unknown]
  - Condition aggravated [Fatal]
  - Cardiac arrest [Fatal]
  - Off label use [Unknown]
